FAERS Safety Report 7722460-0 (Version None)
Quarter: 2011Q3

REPORT INFORMATION
  Report Type: 
  Country: None (occurrence: None)
  Receive Date: 20110831
  Receipt Date: 20110816
  Transmission Date: 20111222
  Serious: Yes (Death)
  Sender: FDA-Public Use
  Company Number: FR-BAYER-2011-073608

PATIENT
  Sex: Female
  Weight: 2 kg

DRUGS (3)
  1. ASPRO [Suspect]
     Dosage: 50 DF, UNK
  2. ACETAMINOPHEN [Suspect]
     Dosage: 16 DF, UNK
  3. IBUPROFEN [Suspect]
     Dosage: 20 DF, UNK

REACTIONS (1)
  - INTRA-UTERINE DEATH [None]
